FAERS Safety Report 9371797 (Version 2)
Quarter: 2013Q3

REPORT INFORMATION
  Report Type: Spontaneous
  Country: FR (occurrence: FR)
  Receive Date: 20130627
  Receipt Date: 20130703
  Transmission Date: 20140515
  Serious: Yes (Hospitalization, Other)
  Sender: FDA-Public Use
  Company Number: FR-PFIZER INC-2013184318

PATIENT
  Age: 59 Year
  Sex: Male

DRUGS (4)
  1. ARACYTINE [Suspect]
     Indication: CHEMOTHERAPY
     Dosage: 3660 MG (2MG/M2X2), UNK
     Route: 040
     Dates: start: 20130408, end: 20130409
  2. CISPLATIN [Suspect]
     Indication: CHEMOTHERAPY
     Dosage: 183 MG, UNK
     Route: 042
     Dates: start: 20130407, end: 20130407
  3. DEXAMETHASONE [Concomitant]
     Indication: CHEMOTHERAPY
     Dosage: 40 MG, UNK
     Dates: start: 20130407, end: 20130410
  4. ONDANSETRON [Concomitant]
     Dosage: UNK
     Dates: start: 20130407, end: 20130408

REACTIONS (6)
  - Ataxia [Recovering/Resolving]
  - Dysarthria [Recovering/Resolving]
  - Encephalitis [Recovering/Resolving]
  - Respiratory distress [Unknown]
  - Autoimmune lymphoproliferative syndrome [Unknown]
  - Tremor [Unknown]
